FAERS Safety Report 23775707 (Version 5)
Quarter: 2024Q2

REPORT INFORMATION
  Report Type: Spontaneous
  Country: US (occurrence: US)
  Receive Date: 20240423
  Receipt Date: 20240521
  Transmission Date: 20240716
  Serious: No
  Sender: FDA-Public Use
  Company Number: US-ABBVIE-5728749

PATIENT
  Sex: Male
  Weight: 99.79 kg

DRUGS (3)
  1. CREON [Suspect]
     Active Substance: PANCRELIPASE AMYLASE\PANCRELIPASE LIPASE\PANCRELIPASE PROTEASE
     Indication: Pancreatic failure
     Dosage: FORM STRENGTH: 24000 UNIT?7 CAPSULES WITH MEALS AND 4 CAPSULES WITH SNACKS
     Route: 048
     Dates: start: 2009, end: 20240429
  2. CREON [Suspect]
     Active Substance: PANCRELIPASE AMYLASE\PANCRELIPASE LIPASE\PANCRELIPASE PROTEASE
     Indication: Pancreatic failure
     Dosage: 14 CAPSULES PER MEAL, 8 SNACK? STRENGTH: 24000 UNIT
     Route: 048
     Dates: start: 20240429
  3. CREON [Suspect]
     Active Substance: PANCRELIPASE AMYLASE\PANCRELIPASE LIPASE\PANCRELIPASE PROTEASE
     Indication: Pancreatic failure
     Dosage: 8 CAPSULES WITH MEALS AND 5 CAPSULES WITH SNACKS?UNKNOWN FORM STRENGTH: 24000 UNIT
     Route: 048
     Dates: start: 202404

REACTIONS (9)
  - Dyspepsia [Recovered/Resolved]
  - Diarrhoea [Recovered/Resolved]
  - Abdominal pain upper [Unknown]
  - Drug ineffective [Recovered/Resolved]
  - Product physical issue [Unknown]
  - Product packaging quantity issue [Unknown]
  - Malabsorption [Unknown]
  - Gastrointestinal disorder [Not Recovered/Not Resolved]
  - Intentional product misuse [Not Recovered/Not Resolved]

NARRATIVE: CASE EVENT DATE: 20240101
